FAERS Safety Report 7631224-8 (Version None)
Quarter: 2011Q3

REPORT INFORMATION
  Report Type: 
  Country: None (occurrence: None)
  Receive Date: 20110725
  Receipt Date: 20110713
  Transmission Date: 20111222
  Serious: Yes (Other)
  Sender: FDA-Public Use
  Company Number: JP-JNJFOC-20110602341

PATIENT
  Sex: Female
  Weight: 50 kg

DRUGS (8)
  1. ZYPREXA [Suspect]
     Indication: DEMENTIA ALZHEIMER'S TYPE
     Route: 048
     Dates: start: 20110314, end: 20110412
  2. ZYPREXA [Suspect]
     Indication: SCHIZOPHRENIA
     Route: 048
     Dates: start: 20110314, end: 20110412
  3. ZYPREXA [Suspect]
     Route: 048
     Dates: start: 20110413, end: 20110427
  4. GALANTAMINE HYDROBROMIDE [Suspect]
     Indication: DEMENTIA
     Dosage: 8 MG OR 4 MG [SIC]
     Route: 048
     Dates: start: 20110413, end: 20110427
  5. GALANTAMINE HYDROBROMIDE [Suspect]
     Indication: DEMENTIA ALZHEIMER'S TYPE
     Dosage: 8 MG OR 4 MG [SIC]
     Route: 048
     Dates: start: 20110413, end: 20110427
  6. ZYPREXA [Suspect]
     Route: 048
     Dates: start: 20110413, end: 20110427
  7. PIPAMPERONE HYDROCHLORIDE [Suspect]
     Indication: DEMENTIA ALZHEIMER'S TYPE
     Route: 048
     Dates: start: 20110210, end: 20110412
  8. PIPAMPERONE HYDROCHLORIDE [Suspect]
     Route: 048
     Dates: start: 20110413, end: 20110427

REACTIONS (5)
  - DYSARTHRIA [None]
  - FALL [None]
  - FAECAL INCONTINENCE [None]
  - ABASIA [None]
  - DIZZINESS [None]
